FAERS Safety Report 17195814 (Version 2)
Quarter: 2021Q1

REPORT INFORMATION
  Report Type: Spontaneous
  Country: IN (occurrence: IN)
  Receive Date: 20191224
  Receipt Date: 20210304
  Transmission Date: 20210419
  Serious: Yes (Death, Hospitalization)
  Sender: FDA-Public Use
  Company Number: PHHY2008IN046151

PATIENT
  Age: 14 Year
  Sex: Female

DRUGS (1)
  1. ONDANSETRON [Suspect]
     Active Substance: ONDANSETRON
     Indication: VOMITING
     Dosage: 4 MG
     Route: 030

REACTIONS (4)
  - Ventricular tachycardia [Fatal]
  - Ventricular fibrillation [Fatal]
  - Cardiogenic shock [Unknown]
  - Vomiting [Unknown]
